FAERS Safety Report 14307114 (Version 1)
Quarter: 2017Q4

REPORT INFORMATION
  Report Type: Spontaneous
  Country: FR (occurrence: FR)
  Receive Date: 20171220
  Receipt Date: 20171220
  Transmission Date: 20180321
  Serious: Yes (Other)
  Sender: FDA-Public Use
  Company Number: FR-MERCK KGAA-2037460

PATIENT
  Age: 67 Year
  Sex: Female

DRUGS (7)
  1. ABACAVIR. [Concomitant]
     Active Substance: ABACAVIR
  2. DOLUTEGRAVIR [Suspect]
     Active Substance: DOLUTEGRAVIR
     Dates: start: 201412
  3. LAMIVUDINE. [Concomitant]
     Active Substance: LAMIVUDINE
  4. FOSAMPRENAVIR [Concomitant]
     Active Substance: FOSAMPRENAVIR
  5. NOVOTHYROX [Suspect]
     Active Substance: LEVOTHYROXINE SODIUM
     Indication: AUTOIMMUNE HYPOTHYROIDISM
     Dates: start: 201004
  6. NOVOTHYROX [Suspect]
     Active Substance: LEVOTHYROXINE SODIUM
  7. RITONAVIR. [Concomitant]
     Active Substance: RITONAVIR

REACTIONS (4)
  - Drug interaction [Unknown]
  - Nervousness [Recovered/Resolved]
  - Hyperthyroidism [Recovered/Resolved]
  - Insomnia [Recovered/Resolved]
